FAERS Safety Report 21802524 (Version 1)
Quarter: 2022Q4

REPORT INFORMATION
  Report Type: Spontaneous
  Country: NL (occurrence: NL)
  Receive Date: 20221231
  Receipt Date: 20221231
  Transmission Date: 20230113
  Serious: Yes (Other)
  Sender: FDA-Public Use
  Company Number: NL-LRB-00856131

PATIENT
  Sex: Female
  Weight: 61 kg

DRUGS (3)
  1. LAMOTRIGINE [Suspect]
     Active Substance: LAMOTRIGINE
     Indication: Temporal lobe epilepsy
     Dosage: 50 MILLIGRAM, TWO TIMES A DAY (2X PER DAG 50 MG)
     Route: 065
     Dates: start: 20000110
  2. LEVETIRACETAM [Suspect]
     Active Substance: LEVETIRACETAM
     Indication: Temporal lobe epilepsy
     Dosage: 500 MILLIGRAM, TWO TIMES A DAY (2X PER DAG 500 MG)
     Route: 065
     Dates: start: 20060110
  3. LAMOTRIGINE [Suspect]
     Active Substance: LAMOTRIGINE
     Indication: Temporal lobe epilepsy
     Dosage: 100 MILLIGRAM, TWO TIMES A DAY (2X PER DAG 100 MG)
     Route: 065
     Dates: start: 20000110

REACTIONS (3)
  - Tardive dyskinesia [Not Recovered/Not Resolved]
  - Amnesia [Not Recovered/Not Resolved]
  - Tremor [Not Recovered/Not Resolved]
